FAERS Safety Report 4490983-6 (Version None)
Quarter: 2004Q4

REPORT INFORMATION
  Report Type: 
  Country: None (occurrence: None)
  Receive Date: 20041027
  Receipt Date: 20041014
  Transmission Date: 20050328
  Serious: Yes (Death, Life-Threatening)
  Sender: FDA-Public Use
  Company Number: 2004239668JP

PATIENT
  Age: 84 Year
  Sex: Male
  Weight: 59 kg

DRUGS (17)
  1. SOLU-MEDROL [Suspect]
     Indication: FACTOR VIII INHIBITION
     Dosage: 500 MG, QD, IV
     Route: 042
     Dates: start: 20020909, end: 20020911
  2. SOLU-MEDROL [Suspect]
     Indication: FACTOR VIII INHIBITION
     Dosage: 500 MG, QD, IV
     Route: 042
     Dates: start: 20021103, end: 20021105
  3. DELTA-CORTEF [Suspect]
     Indication: FACTOR VIII INHIBITION
     Dosage: SEE IMAGE
     Route: 048
     Dates: start: 20020912, end: 20020918
  4. DELTA-CORTEF [Suspect]
     Indication: FACTOR VIII INHIBITION
     Dosage: SEE IMAGE
     Route: 048
     Dates: start: 20020919, end: 20020924
  5. DELTA-CORTEF [Suspect]
     Indication: FACTOR VIII INHIBITION
     Dosage: SEE IMAGE
     Route: 048
     Dates: start: 20020925, end: 20020925
  6. DELTA-CORTEF [Suspect]
     Indication: FACTOR VIII INHIBITION
     Dosage: SEE IMAGE
     Route: 048
     Dates: start: 20020926, end: 20021002
  7. DELTA-CORTEF [Suspect]
     Indication: FACTOR VIII INHIBITION
     Dosage: SEE IMAGE
     Route: 048
     Dates: start: 20021003, end: 20021023
  8. DELTA-CORTEF [Suspect]
     Indication: FACTOR VIII INHIBITION
     Dosage: SEE IMAGE
     Route: 048
     Dates: start: 20021024, end: 20021101
  9. DELTA-CORTEF [Suspect]
     Indication: FACTOR VIII INHIBITION
     Dosage: SEE IMAGE
     Route: 048
     Dates: start: 20021102, end: 20021102
  10. PREDNISOLONE [Suspect]
     Indication: FACTOR VIII INHIBITION
     Dosage: 60 MG, QD, IV
     Route: 042
     Dates: start: 20021103, end: 20021103
  11. CYCLOSPORINE [Concomitant]
  12. CYCLOPHOSPHAMIDE [Concomitant]
  13. VINCRISTINE [Concomitant]
  14. INSULIN [Concomitant]
  15. NOVOSEVEN [Concomitant]
  16. SIGMART (NICORANDIL) [Concomitant]
  17. ISOSORBIDE MONONITRATE [Concomitant]

REACTIONS (10)
  - CONDITION AGGRAVATED [None]
  - CYTOMEGALOVIRUS ENTEROCOLITIS [None]
  - DIABETES MELLITUS [None]
  - IMMUNODEFICIENCY [None]
  - INTERSTITIAL LUNG DISEASE [None]
  - OPPORTUNISTIC INFECTION [None]
  - PNEUMOCYSTIS CARINII PNEUMONIA [None]
  - RECTAL HAEMORRHAGE [None]
  - RECTAL ULCER [None]
  - RESPIRATORY FAILURE [None]
